FAERS Safety Report 5809012-4 (Version None)
Quarter: 2008Q3

REPORT INFORMATION
  Report Type: 
  Country: None (occurrence: None)
  Receive Date: 20080710
  Receipt Date: 20080710
  Transmission Date: 20090109
  Serious: Yes (Death)
  Sender: FDA-Public Use
  Company Number: None

PATIENT
  Age: 16 Year
  Sex: Male
  Weight: 73.9363 kg

DRUGS (2)
  1. CONERTA 72MG [Suspect]
     Indication: ATTENTION DEFICIT/HYPERACTIVITY DISORDER
     Dosage: -1- 72MG DAILY PO, APPROX. 4 YEARS
     Route: 048
  2. CONERTA 18MG [Suspect]
     Dosage: -1- 18MG DAILY PO
     Route: 048

REACTIONS (2)
  - ASPHYXIA [None]
  - COMPLETED SUICIDE [None]
